FAERS Safety Report 4870652-0 (Version None)
Quarter: 2005Q4

REPORT INFORMATION
  Report Type: 
  Country: None (occurrence: None)
  Receive Date: 20051228
  Receipt Date: 20051216
  Transmission Date: 20060501
  Serious: Yes (Other)
  Sender: FDA-Public Use
  Company Number: 2005169906

PATIENT
  Sex: Male

DRUGS (3)
  1. CABERGOLINE [Suspect]
     Indication: PARKINSON'S DISEASE
     Dosage: 6 MG (UNKNOWN), ORAL
     Route: 048
  2. SINEMET [Concomitant]
  3. SELEGELINE HYDROCHLORIDE [Concomitant]

REACTIONS (7)
  - ABDOMINAL PAIN UPPER [None]
  - CHEST DISCOMFORT [None]
  - CONFUSIONAL STATE [None]
  - DYSPEPSIA [None]
  - DYSPNOEA [None]
  - OEDEMA PERIPHERAL [None]
  - PELVIC PAIN [None]
